FAERS Safety Report 15977193 (Version 2)
Quarter: 2019Q1

REPORT INFORMATION
  Report Type: Spontaneous
  Country: US (occurrence: US)
  Receive Date: 20190218
  Receipt Date: 20190301
  Transmission Date: 20190418
  Serious: Yes (Other)
  Sender: FDA-Public Use
  Company Number: US-ASTRAZENECA-2018SF15018

PATIENT
  Age: 17347 Day
  Sex: Female

DRUGS (9)
  1. PREVACID [Concomitant]
     Active Substance: LANSOPRAZOLE
  2. PROTONIX [Suspect]
     Active Substance: PANTOPRAZOLE SODIUM
     Route: 065
     Dates: start: 201209, end: 201705
  3. DULOXETINE. [Concomitant]
     Active Substance: DULOXETINE
  4. NEXIUM [Suspect]
     Active Substance: ESOMEPRAZOLE MAGNESIUM
     Route: 048
     Dates: start: 20120925, end: 20170503
  5. NEXIUM [Suspect]
     Active Substance: ESOMEPRAZOLE MAGNESIUM
     Route: 048
     Dates: start: 201209, end: 201705
  6. AMOXICILLIN. [Concomitant]
     Active Substance: AMOXICILLIN
  7. AMLODIPINE [Concomitant]
     Active Substance: AMLODIPINE BESYLATE
  8. TYLENOL [Concomitant]
     Active Substance: ACETAMINOPHEN
  9. NEXIUM [Suspect]
     Active Substance: ESOMEPRAZOLE MAGNESIUM
     Route: 048
     Dates: start: 20140409

REACTIONS (6)
  - Tubulointerstitial nephritis [Unknown]
  - End stage renal disease [Unknown]
  - Renal injury [Unknown]
  - Renal failure [Unknown]
  - Acute kidney injury [Unknown]
  - Chronic kidney disease [Unknown]

NARRATIVE: CASE EVENT DATE: 20071029
